FAERS Safety Report 5164343-9 (Version None)
Quarter: 2006Q4

REPORT INFORMATION
  Report Type: 
  Country: None (occurrence: None)
  Receive Date: 20061127
  Receipt Date: 20061127
  Transmission Date: 20070319
  Serious: Yes (Hospitalization)
  Sender: FDA-Public Use
  Company Number: None

PATIENT
  Age: 31 Year
  Sex: Female

DRUGS (1)
  1. REMICADE [Suspect]
     Dosage: 300 MG IN 250 ML NS ONCE IV DRIP
     Route: 041
     Dates: start: 20051206, end: 20051206

REACTIONS (1)
  - CHILLS [None]
